FAERS Safety Report 6688397-3 (Version None)
Quarter: 2010Q2

REPORT INFORMATION
  Report Type: 
  Country: None (occurrence: None)
  Receive Date: 20100420
  Receipt Date: 20100329
  Transmission Date: 20101027
  Serious: Yes (Other)
  Sender: FDA-Public Use
  Company Number: DE-ROCHE-698033

PATIENT
  Age: 65 Year
  Sex: Male

DRUGS (2)
  1. BEVACIZUMAB [Suspect]
     Indication: DRUG USE FOR UNKNOWN INDICATION
     Route: 065
  2. RANIBIZUMAB [Suspect]
     Indication: DRUG USE FOR UNKNOWN INDICATION
     Dosage: UNK
     Route: 031
     Dates: start: 20070412

REACTIONS (4)
  - EYE HAEMORRHAGE [None]
  - RETINAL DISORDER [None]
  - RETINAL OEDEMA [None]
  - VISUAL ACUITY REDUCED [None]
